FAERS Safety Report 7838183-3 (Version None)
Quarter: 2011Q4

REPORT INFORMATION
  Report Type: 
  Country: None (occurrence: None)
  Receive Date: 20111024
  Receipt Date: 20111013
  Transmission Date: 20120403
  Serious: Yes (Hospitalization)
  Sender: FDA-Public Use
  Company Number: CA-BAXTER-2011BH032555

PATIENT
  Sex: Male

DRUGS (2)
  1. DIANEAL [Suspect]
     Indication: PERITONEAL DIALYSIS
     Route: 033
     Dates: start: 20100701
  2. DIANEAL [Suspect]
     Route: 033
     Dates: start: 20100701

REACTIONS (5)
  - SUBDURAL HAEMATOMA [None]
  - PYREXIA [None]
  - ASTHENIA [None]
  - HEADACHE [None]
  - CHILLS [None]
